FAERS Safety Report 5869664-X (Version None)
Quarter: 2008Q3

REPORT INFORMATION
  Report Type: 
  Country: None (occurrence: None)
  Receive Date: 20080902
  Receipt Date: 20080819
  Transmission Date: 20090109
  Serious: Yes (Hospitalization, Other)
  Sender: FDA-Public Use
  Company Number: 2008BI010748

PATIENT
  Sex: Female
  Weight: 70.7611 kg

DRUGS (2)
  1. TYSABRI [Suspect]
     Indication: MULTIPLE SCLEROSIS
     Dosage: IV
     Route: 042
     Dates: start: 20050223, end: 20050223
  2. TYSABRI [Suspect]
     Indication: MULTIPLE SCLEROSIS
     Dosage: IV
     Route: 042
     Dates: start: 20061109

REACTIONS (23)
  - ACTIVITIES OF DAILY LIVING IMPAIRED [None]
  - AMNESIA [None]
  - ANXIETY [None]
  - BLOOD POTASSIUM DECREASED [None]
  - BODY TEMPERATURE INCREASED [None]
  - CARDIAC DISORDER [None]
  - CLAUSTROPHOBIA [None]
  - CRYING [None]
  - DRY MOUTH [None]
  - DYSGRAPHIA [None]
  - FOOT FRACTURE [None]
  - INSOMNIA [None]
  - MENTAL DISORDER [None]
  - MOVEMENT DISORDER [None]
  - NASOPHARYNGITIS [None]
  - OEDEMA PERIPHERAL [None]
  - PNEUMONIA VIRAL [None]
  - RENAL PAIN [None]
  - STRESS [None]
  - SYNCOPE [None]
  - TEMPERATURE INTOLERANCE [None]
  - TREMOR [None]
  - WEIGHT DECREASED [None]
